FAERS Safety Report 7298225-3 (Version None)
Quarter: 2011Q1

REPORT INFORMATION
  Report Type: 
  Country: None (occurrence: None)
  Receive Date: 20110217
  Receipt Date: 20101223
  Transmission Date: 20110831
  Serious: Yes (Hospitalization, Other)
  Sender: FDA-Public Use
  Company Number: US-BAYER-201023655NA

PATIENT
  Sex: Female

DRUGS (11)
  1. YASMIN [Suspect]
     Indication: PRODUCT USED FOR UNKNOWN INDICATION
     Route: 048
     Dates: start: 20040401, end: 20080901
  2. FLEXERIL [Concomitant]
     Dosage: UNK
     Dates: start: 20070101
  3. PHENAZOPYRIDINE HCL TAB [Concomitant]
     Dosage: UNK
     Dates: start: 20070101
  4. VICODIN [Concomitant]
     Dosage: UNK
     Dates: start: 20070101
  5. MOTRIN [Concomitant]
     Dosage: UNK
     Dates: start: 20070101
  6. XANAX [Concomitant]
     Indication: ANXIETY
     Dosage: UNK
     Dates: start: 20060101
  7. DOXYCYCLIN [Concomitant]
     Dosage: UNK
     Dates: start: 20070101
  8. CIPRO [Concomitant]
     Dosage: UNK
     Dates: start: 20070101
  9. YAZ [Suspect]
     Indication: PRODUCT USED FOR UNKNOWN INDICATION
     Route: 048
     Dates: start: 20040401, end: 20080901
  10. OCELLA [Suspect]
     Indication: PRODUCT USED FOR UNKNOWN INDICATION
     Route: 048
     Dates: start: 20040401, end: 20080901
  11. LEVAQUIN [Concomitant]
     Dosage: UNK
     Dates: start: 20070101

REACTIONS (3)
  - HEPATOBILIARY SCAN ABNORMAL [None]
  - GALLBLADDER DISORDER [None]
  - ABDOMINAL PAIN [None]
